FAERS Safety Report 9961418 (Version 1)
Quarter: 2014Q1

REPORT INFORMATION
  Report Type: Other
  Country: US (occurrence: US)
  Receive Date: 20140305
  Receipt Date: 20140305
  Transmission Date: 20141002
  Serious: Yes (Death)
  Sender: FDA-Public Use
  Company Number: US-FRI-1000054944

PATIENT
  Age: 47 Year
  Sex: Female

DRUGS (9)
  1. CITALOPRAM [Suspect]
  2. METHAMPHETAMINE [Suspect]
  3. ACETAMINOPHEN/ HYDROCODONE [Suspect]
  4. ALPRAZOLAM [Suspect]
  5. BUPROPION [Suspect]
  6. VENLAFAXINE [Suspect]
  7. CARBAMAZEPINE [Suspect]
  8. DOXYLAMINE [Suspect]
  9. TRAMADOL [Suspect]

REACTIONS (1)
  - Death [Fatal]
